FAERS Safety Report 5325404-4 (Version None)
Quarter: 2007Q2

REPORT INFORMATION
  Report Type: 
  Country: None (occurrence: None)
  Receive Date: 20070509
  Receipt Date: 20070427
  Transmission Date: 20071010
  Serious: Yes (Hospitalization)
  Sender: FDA-Public Use
  Company Number: 164701

PATIENT
  Age: 60 Year
  Sex: Female
  Weight: 65.318 kg

DRUGS (8)
  1. AVONEX [Suspect]
     Indication: MULTIPLE SCLEROSIS
     Dosage: 30 UG; QW; IM
     Route: 030
     Dates: start: 19981201, end: 20030101
  2. AVONEX [Suspect]
     Indication: MULTIPLE SCLEROSIS
     Dosage: SEE IMAGE
     Route: 030
     Dates: start: 20030101, end: 20060101
  3. AVONEX [Suspect]
     Indication: MULTIPLE SCLEROSIS
     Dosage: SEE IMAGE
     Route: 030
     Dates: start: 20070201
  4. ZOCOR [Concomitant]
  5. XANAX [Concomitant]
  6. IBUPROFEN [Concomitant]
  7. PRILOSEC [Concomitant]
  8. DARVOCET [Concomitant]

REACTIONS (3)
  - CHILLS [None]
  - LUNG ADENOCARCINOMA [None]
  - TREMOR [None]
